FAERS Safety Report 9028211 (Version 1)
Quarter: 2013Q1

REPORT INFORMATION
  Report Type: Spontaneous
  Country: US (occurrence: None)
  Receive Date: 20130115
  Receipt Date: 20130115
  Transmission Date: 20140127
  Serious: Yes (Disabling)
  Sender: FDA-Public Use
  Company Number: None

PATIENT
  Age: 32 Year
  Sex: Female
  Weight: 65.77 kg

DRUGS (1)
  1. CELEBREX [Suspect]
     Indication: DEPRESSION
     Dates: start: 20100601, end: 20100601

REACTIONS (8)
  - Pain [None]
  - Vision blurred [None]
  - Visual impairment [None]
  - Headache [None]
  - Lethargy [None]
  - Diarrhoea [None]
  - Drug ineffective [None]
  - Cognitive disorder [None]
